FAERS Safety Report 7730508-2 (Version None)
Quarter: 2011Q3

REPORT INFORMATION
  Report Type: 
  Country: None (occurrence: None)
  Receive Date: 20110906
  Receipt Date: 20110823
  Transmission Date: 20111222
  Serious: Yes (Other)
  Sender: FDA-Public Use
  Company Number: PHHY2011JP75770

PATIENT
  Sex: Female

DRUGS (2)
  1. NEORAL [Suspect]
     Indication: COLLAGEN DISORDER
     Dosage: 100 MG DAILY
     Route: 048
  2. ADRENAL HORMONE PREPARATIONS [Concomitant]
     Dosage: UNK UKN, UNK

REACTIONS (5)
  - HAEMORRHAGE SUBCUTANEOUS [None]
  - PH URINE INCREASED [None]
  - GINGIVAL BLEEDING [None]
  - OEDEMA PERIPHERAL [None]
  - DYSURIA [None]
